FAERS Safety Report 7889975-6 (Version None)
Quarter: 2011Q4

REPORT INFORMATION
  Report Type: 
  Country: None (occurrence: None)
  Receive Date: 20111103
  Receipt Date: 20111021
  Transmission Date: 20120403
  Serious: Yes (Hospitalization, Other)
  Sender: FDA-Public Use
  Company Number: DE-CTI_01385_2011

PATIENT
  Sex: Male

DRUGS (4)
  1. ECOLICIN [Concomitant]
     Dosage: DF
  2. CUROSURF [Suspect]
     Indication: NEONATAL RESPIRATORY DISTRESS SYNDROME
     Route: 039
     Dates: start: 20110621, end: 20110621
  3. SOLUTIONS FOR PARENTERAL NUTRITION [Concomitant]
     Dosage: DF
  4. CAFFEINE CITRATE [Concomitant]
     Dosage: DF
     Dates: start: 20110621

REACTIONS (9)
  - LEUKOPENIA [None]
  - CONJUNCTIVITIS [None]
  - C-REACTIVE PROTEIN INCREASED [None]
  - APNOEA [None]
  - BRADYCARDIA [None]
  - INTERLEUKIN LEVEL INCREASED [None]
  - THROMBOCYTOPENIA [None]
  - HYPERBILIRUBINAEMIA NEONATAL [None]
  - OXYGEN SATURATION DECREASED [None]
